FAERS Safety Report 25036022 (Version 1)
Quarter: 2025Q1

REPORT INFORMATION
  Report Type: Spontaneous
  Country: ZA (occurrence: ZA)
  Receive Date: 20250304
  Receipt Date: 20250304
  Transmission Date: 20250409
  Serious: Yes (Other)
  Sender: ALEXION PHARMACEUTICALS
  Company Number: ZA-AstraZeneca-CH-00814755A

PATIENT
  Age: 84 Year

DRUGS (8)
  1. BUDESONIDE\FORMOTEROL [Suspect]
     Active Substance: BUDESONIDE\FORMOTEROL
     Indication: Asthma
  2. BUDESONIDE\FORMOTEROL [Suspect]
     Active Substance: BUDESONIDE\FORMOTEROL
     Indication: Chronic obstructive pulmonary disease
  3. BUDESONIDE\FORMOTEROL [Suspect]
     Active Substance: BUDESONIDE\FORMOTEROL
     Indication: Emphysema
  4. Cifran [Concomitant]
  5. Ferovance [Concomitant]
  6. CELECOXIB [Concomitant]
     Active Substance: CELECOXIB
     Indication: Pain
  7. CELECOXIB [Concomitant]
     Active Substance: CELECOXIB
     Indication: Inflammation
  8. CELECOXIB [Concomitant]
     Active Substance: CELECOXIB
     Indication: Arthritis

REACTIONS (1)
  - Diabetes mellitus [Unknown]
